FAERS Safety Report 14672973 (Version 2)
Quarter: 2018Q2

REPORT INFORMATION
  Report Type: Other
  Country: CA (occurrence: CA)
  Receive Date: 20180323
  Receipt Date: 20180422
  Transmission Date: 20180711
  Serious: Yes (Hospitalization, Other)
  Sender: FDA-Public Use
  Company Number: CA-APOTEX-2018AP008216

PATIENT
  Age: 69 Year
  Sex: Female

DRUGS (1)
  1. SALBUTAMOL [Suspect]
     Active Substance: ALBUTEROL
     Indication: PRODUCT USED FOR UNKNOWN INDICATION
     Dosage: UNK
     Route: 065

REACTIONS (8)
  - Pneumonia [Unknown]
  - Asthma [Unknown]
  - Coronary artery disease [Unknown]
  - Cough [Unknown]
  - Blood pressure increased [Unknown]
  - Headache [Unknown]
  - Dyspnoea [Unknown]
  - Irritable bowel syndrome [Unknown]
